FAERS Safety Report 7973789-2 (Version None)
Quarter: 2011Q4

REPORT INFORMATION
  Report Type: 
  Country: None (occurrence: None)
  Receive Date: 20111213
  Receipt Date: 20111202
  Transmission Date: 20120403
  Serious: Yes (Hospitalization)
  Sender: FDA-Public Use
  Company Number: PHEH2011US010797

PATIENT
  Sex: Male

DRUGS (5)
  1. REVLIMID [Suspect]
     Indication: MULTIPLE MYELOMA
     Dosage: 25 MG, QD X 21 DAYS
     Route: 048
     Dates: start: 20110705, end: 20110828
  2. ZOMETA [Suspect]
     Route: 042
  3. REVLIMID [Suspect]
     Dosage: 15 MG, DAILY X 21 DAYS
     Route: 048
     Dates: start: 20110906
  4. ASPIRIN [Concomitant]
     Indication: THROMBOSIS PROPHYLAXIS
     Dosage: 325 MG, QD
     Route: 048
  5. DEXAMETHASONE [Concomitant]
     Indication: MULTIPLE MYELOMA
     Dosage: 40 MG, EVERY WEEK

REACTIONS (9)
  - HYPOAESTHESIA [None]
  - ASTHENIA [None]
  - DYSPNOEA [None]
  - BRADYCARDIA [None]
  - HAEMOGLOBIN DECREASED [None]
  - HYPOTHYROIDISM [None]
  - BLOOD CALCIUM DECREASED [None]
  - PARAESTHESIA [None]
  - RED BLOOD CELL COUNT DECREASED [None]
